FAERS Safety Report 7307837-X (Version None)
Quarter: 2011Q1

REPORT INFORMATION
  Report Type: 
  Country: None (occurrence: None)
  Receive Date: 20110223
  Receipt Date: 20100218
  Transmission Date: 20110831
  Serious: No
  Sender: FDA-Public Use
  Company Number: A0842815A

PATIENT

DRUGS (3)
  1. FOSAMPRENAVIR [Concomitant]
     Indication: HIV INFECTION
     Route: 065
  2. UNKNOWN MEDICATION [Concomitant]
  3. ABACAVIR [Suspect]
     Indication: HIV INFECTION
     Route: 065

REACTIONS (1)
  - DRUG HYPERSENSITIVITY [None]
